FAERS Safety Report 20035112 (Version 9)
Quarter: 2022Q3

REPORT INFORMATION
  Report Type: Report from Study
  Country: DE (occurrence: DE)
  Receive Date: 20211104
  Receipt Date: 20220816
  Transmission Date: 20221027
  Serious: Yes (Other)
  Sender: FDA-Public Use
  Company Number: DE-TAKEDA-2021TUS042126

PATIENT
  Age: 36 Year
  Sex: Female

DRUGS (28)
  1. CANDESARTAN [Suspect]
     Active Substance: CANDESARTAN
     Indication: Hypertension
     Dosage: 16 MILLIGRAM, QD
     Route: 048
  2. PANTOPRAZOLE [Suspect]
     Active Substance: PANTOPRAZOLE
     Indication: Gastric disorder
     Dosage: 20 MILLIGRAM, QD
     Route: 048
  3. CORTISONE [Suspect]
     Active Substance: CORTISONE
     Indication: Product used for unknown indication
     Dosage: 5 MILLIGRAM, QD, START DATE: 26-JUN-2021
     Route: 048
     Dates: end: 20210726
  4. CORTISONE [Suspect]
     Active Substance: CORTISONE
     Dosage: 5 MILLIGRAM, QD
     Route: 048
  5. CORTISONE [Suspect]
     Active Substance: CORTISONE
     Dosage: 5 MILLIGRAM, QD
     Route: 048
     Dates: start: 20210726, end: 20210726
  6. NATPARA (PARATHYROID HORMONE) [Suspect]
     Active Substance: PARATHYROID HORMONE
     Indication: Hypoparathyroidism
     Dosage: 25 MICROGRAM, QD (INJECTION PEN,MIXING DEVICE,NEEDLES)
     Route: 058
     Dates: start: 20170928
  7. NATPARA (PARATHYROID HORMONE) [Suspect]
     Active Substance: PARATHYROID HORMONE
     Dosage: 25 MICROGRAM, QD (INJECTION PEN,MIXING DEVICE,NEEDLES)
     Route: 058
     Dates: start: 20170928
  8. NATPARA (PARATHYROID HORMONE) [Suspect]
     Active Substance: PARATHYROID HORMONE
     Dosage: 50 MICROGRAM, QD (25 MICROGRAM, BID) (INJECTION PEN,MIXING DEVICE,NEEDLES)
     Route: 058
     Dates: start: 20170928
  9. ADALIMUMAB [Concomitant]
     Active Substance: ADALIMUMAB
     Indication: Crohn^s disease
     Dosage: 40 MILLIGRAM, BIWEEKLY
     Route: 058
  10. ADALIMUMAB [Concomitant]
     Active Substance: ADALIMUMAB
     Indication: Hypokalaemia
     Dosage: UNK, QD
     Route: 065
  11. CALCITRAT [Concomitant]
     Indication: Hypoparathyroidism
     Dosage: UNK UNK, QD,UNKNOWN DOSE DAILY
     Route: 048
  12. CALCIUM CARBONATE\CHOLECALCIFEROL [Concomitant]
     Active Substance: CALCIUM CARBONATE\CHOLECALCIFEROL
     Indication: Hypoparathyroidism
     Dosage: UNK UNK, QD, UNKNOWN DOSE DAILY
     Route: 048
  13. KALIUM-R [Concomitant]
     Indication: Hypokalaemia
     Dosage: 9 DOSAGE FORM, QD
     Route: 048
  14. KALIUM-R [Concomitant]
     Dosage: UNK
     Route: 065
  15. CALCITRIOL [Concomitant]
     Active Substance: CALCITRIOL
     Indication: Hypoparathyroidism
     Dosage: UNK,UNKNOWN DOSE AND FREQUENCY
     Route: 048
  16. CALCIUM [Concomitant]
     Active Substance: CALCIUM
     Indication: Hypoparathyroidism
     Dosage: UNK
     Route: 048
  17. MAGNESIUM [Concomitant]
     Active Substance: MAGNESIUM
     Indication: Hypoparathyroidism
     Dosage: QD, (4-5 SACHETS)
     Route: 048
  18. LEVOTHYROXINE SODIUM [Concomitant]
     Active Substance: LEVOTHYROXINE SODIUM
     Indication: Thyroidectomy
     Dosage: 150 MICROGRAM, QD
     Route: 048
  19. XIPAMIDE [Concomitant]
     Active Substance: XIPAMIDE
     Indication: Oedema
     Dosage: 20 MILLIGRAM, QD
     Route: 048
  20. XIPAMIDE [Concomitant]
     Active Substance: XIPAMIDE
     Indication: Hypertension
  21. SPIRONOLACTONE [Concomitant]
     Active Substance: SPIRONOLACTONE
     Indication: Oedema
     Dosage: 25 MILLIGRAM, QD
     Route: 048
  22. MAGNESIUM ASPARTATE ANHYDROUS [Concomitant]
     Active Substance: MAGNESIUM ASPARTATE ANHYDROUS
     Indication: Hypoparathyroidism
     Dosage: UNK, QD/UNK UNK, 1X/DAY
     Route: 048
  23. CALCIUM [Concomitant]
     Active Substance: CALCIUM
     Indication: Hypoparathyroidism
     Dosage: UNKNOWN DOSE AND FREQUENCY
     Route: 048
  24. CALCIUM CARBONATE [Concomitant]
     Active Substance: CALCIUM CARBONATE
     Dosage: UNK
     Route: 065
  25. ADALIMUMAB [Concomitant]
     Active Substance: ADALIMUMAB
     Indication: Hypokalaemia
     Dosage: 40 MILLIGRAM, Q2W
     Route: 065
  26. ADALIMUMAB [Concomitant]
     Active Substance: ADALIMUMAB
     Indication: Crohn^s disease
     Dosage: UNK, QD
     Route: 048
  27. CHOLECALCIFEROL [Concomitant]
     Active Substance: CHOLECALCIFEROL
     Indication: Hypoparathyroidism
     Dosage: UNK, QD
     Route: 065
  28. POTASSIUM CHLORIDE [Concomitant]
     Active Substance: POTASSIUM CHLORIDE
     Dosage: UNK
     Route: 048

REACTIONS (9)
  - Abortion spontaneous [Recovered/Resolved]
  - Maternal exposure during pregnancy [Recovered/Resolved]
  - Hypocalcaemia [Recovered/Resolved]
  - Device issue [Recovered/Resolved]
  - Paraesthesia [Recovering/Resolving]
  - Diarrhoea [Recovered/Resolved]
  - Therapy interrupted [Recovered/Resolved]
  - Pregnancy [Not Recovered/Not Resolved]
  - Off label use [Not Recovered/Not Resolved]

NARRATIVE: CASE EVENT DATE: 20210401
